FAERS Safety Report 7936836-X (Version None)
Quarter: 2011Q4

REPORT INFORMATION
  Report Type: 
  Country: None (occurrence: None)
  Receive Date: 20111123
  Receipt Date: 20111121
  Transmission Date: 20120403
  Serious: Yes (Hospitalization, Other)
  Sender: FDA-Public Use
  Company Number: CN-ROCHE-1014783

PATIENT
  Age: 53 Year
  Sex: Female
  Weight: 50 kg

DRUGS (2)
  1. XELODA [Suspect]
     Indication: GASTRIC CANCER
     Route: 048
     Dates: start: 20111009, end: 20111018
  2. OXALIPLATIN [Concomitant]
     Indication: GASTRIC CANCER
     Route: 041
     Dates: start: 20111008, end: 20111008

REACTIONS (13)
  - DIARRHOEA [None]
  - PYREXIA [None]
  - MARASMUS [None]
  - BONE MARROW FAILURE [None]
  - RASH [None]
  - CONFUSIONAL STATE [None]
  - MUSCULAR WEAKNESS [None]
  - GASTROINTESTINAL ULCER [None]
  - VOMITING [None]
  - BLOOD PRESSURE DECREASED [None]
  - HAEMATOCHEZIA [None]
  - ANASTOMOTIC HAEMORRHAGE [None]
  - STOMATITIS [None]
